FAERS Safety Report 5587069-6 (Version None)
Quarter: 2008Q1

REPORT INFORMATION
  Report Type: 
  Country: None (occurrence: None)
  Receive Date: 20080110
  Receipt Date: 20080103
  Transmission Date: 20080703
  Serious: Yes (Other)
  Sender: FDA-Public Use
  Company Number: B0361305A

PATIENT
  Sex: Female

DRUGS (3)
  1. PAROXETINE HYDROCHLORIDE [Suspect]
     Indication: DEPRESSION
     Route: 065
     Dates: start: 19951121
  2. DIAZEPAM [Concomitant]
     Dates: start: 19900602
  3. AMITRIPTYLINE HCL [Concomitant]
     Dates: start: 20020329

REACTIONS (12)
  - ABDOMINAL PAIN UPPER [None]
  - CRYING [None]
  - DIARRHOEA [None]
  - DRUG WITHDRAWAL SYNDROME [None]
  - EMOTIONAL DISORDER [None]
  - HEADACHE [None]
  - HYPERHIDROSIS [None]
  - IRRITABILITY [None]
  - NASOPHARYNGITIS [None]
  - NAUSEA [None]
  - PRURITUS [None]
  - SUICIDAL IDEATION [None]
